FAERS Safety Report 23677925 (Version 1)
Quarter: 2024Q1

REPORT INFORMATION
  Report Type: Spontaneous
  Country: US (occurrence: None)
  Receive Date: 20240326
  Receipt Date: 20240326
  Transmission Date: 20240410
  Serious: Yes (unspecified)
  Sender: FDA-Public Use
  Company Number: None

PATIENT
  Age: 54 Year
  Sex: Female
  Weight: 58.5 kg

DRUGS (1)
  1. METRONIDAZOLE [Suspect]
     Active Substance: METRONIDAZOLE
     Indication: Rosacea
     Dosage: OTHER QUANTITY : 1 SURFACE TOPICAL;?FREQUENCY : TWICE A DAY;?
     Route: 061
     Dates: start: 20240302, end: 20240324

REACTIONS (5)
  - Crying [None]
  - Anxiety [None]
  - Middle insomnia [None]
  - Depression [None]
  - Menopausal symptoms [None]

NARRATIVE: CASE EVENT DATE: 20240302
